FAERS Safety Report 8540796-0 (Version None)
Quarter: 2012Q3

REPORT INFORMATION
  Report Type: 
  Country: None (occurrence: None)
  Receive Date: 20120726
  Receipt Date: 20120717
  Transmission Date: 20120928
  Serious: Yes (Other)
  Sender: FDA-Public Use
  Company Number: US-ASTRAZENECA-2012SE49985

PATIENT
  Age: 67 Year
  Sex: Female
  Weight: 68 kg

DRUGS (7)
  1. OMEPRAZOLE [Suspect]
     Indication: GASTROOESOPHAGEAL REFLUX DISEASE
     Route: 048
  2. SEROQUEL XR [Suspect]
     Indication: BIPOLAR DISORDER
     Route: 048
  3. POTASSIUM CHLORIDE [Concomitant]
     Indication: CROHN'S DISEASE
  4. DOXEPIN [Concomitant]
     Indication: DEPRESSION
  5. LYRICA [Concomitant]
     Indication: FIBROMYALGIA
  6. SYMBICORT [Suspect]
     Indication: ASTHMA
     Dosage: 80/4,5 MCG 2 PUFFS TWICE A DAY
     Route: 055
  7. FLUOXETINE HCL [Concomitant]
     Indication: DEPRESSION

REACTIONS (4)
  - FIBROMYALGIA [None]
  - ROAD TRAFFIC ACCIDENT [None]
  - GASTROOESOPHAGEAL REFLUX DISEASE [None]
  - ULNA FRACTURE [None]
